FAERS Safety Report 8424273-3 (Version None)
Quarter: 2012Q2

REPORT INFORMATION
  Report Type: 
  Country: None (occurrence: None)
  Receive Date: 20120608
  Receipt Date: 20120206
  Transmission Date: 20120825
  Serious: No
  Sender: FDA-Public Use
  Company Number: US-ASTRAZENECA-2012SE03240

PATIENT
  Age: 89 Year
  Sex: Female
  Weight: 59 kg

DRUGS (6)
  1. BUDESONIDE [Concomitant]
  2. PULMICORT FLEXHALER [Suspect]
     Indication: ASTHMA
     Route: 055
     Dates: start: 20111227
  3. OMEPRAZOLE [Concomitant]
  4. EXFORGE [Concomitant]
  5. EVISTA [Concomitant]
  6. SINGULAIR [Concomitant]

REACTIONS (2)
  - DYSPNOEA [None]
  - DRUG DOSE OMISSION [None]
